FAERS Safety Report 15774543 (Version 2)
Quarter: 2019Q1

REPORT INFORMATION
  Report Type: Spontaneous
  Country: FR (occurrence: FR)
  Receive Date: 20181229
  Receipt Date: 20190103
  Transmission Date: 20190417
  Serious: Yes (Disabling, Other)
  Sender: FDA-Public Use
  Company Number: FR-TEVA-2018-FR-992625

PATIENT
  Sex: Female
  Weight: 80 kg

DRUGS (3)
  1. ANDROCUR 50 MG, COMPRIME [Suspect]
     Active Substance: CYPROTERONE ACETATE
     Indication: HYPERANDROGENISM
     Dosage: 1 DOSAGE FORMS DAILY;
     Route: 048
     Dates: start: 2006, end: 2017
  2. CALCIUM (ACETATE DE) [Concomitant]
  3. ESTREVA (ESTRADIOL THERAMEX) [Suspect]
     Active Substance: ESTRADIOL
     Route: 065

REACTIONS (5)
  - Fatigue [Recovered/Resolved with Sequelae]
  - Meningioma [Not Recovered/Not Resolved]
  - Exophthalmos [Recovered/Resolved with Sequelae]
  - Visual field defect [Recovered/Resolved with Sequelae]
  - Headache [Recovered/Resolved with Sequelae]

NARRATIVE: CASE EVENT DATE: 2015
